FAERS Safety Report 5101691-2 (Version None)
Quarter: 2006Q3

REPORT INFORMATION
  Report Type: 
  Country: None (occurrence: None)
  Receive Date: 20060731
  Receipt Date: 20060601
  Transmission Date: 20061208
  Serious: No
  Sender: FDA-Public Use
  Company Number: 2006PV014929

PATIENT
  Age: 65 Year
  Sex: Female
  Weight: 119.296 kg

DRUGS (10)
  1. BYETTA [Suspect]
     Indication: DIABETES MELLITUS NON-INSULIN-DEPENDENT
     Dosage: SEE IMAGE
     Route: 058
     Dates: start: 20060320, end: 20060401
  2. BYETTA [Suspect]
     Indication: DIABETES MELLITUS NON-INSULIN-DEPENDENT
     Dosage: SEE IMAGE
     Route: 058
     Dates: start: 20060521
  3. GLUCOPHAGE [Concomitant]
  4. ACTOS /USA/ [Concomitant]
  5. METOPROLOL [Concomitant]
  6. DIOVAN [Concomitant]
  7. PLAVIX [Concomitant]
  8. ZETIA [Concomitant]
  9. SPIRONOLACTONE [Concomitant]
  10. KLONOPIN [Concomitant]

REACTIONS (9)
  - ABDOMINAL DISTENSION [None]
  - ABDOMINAL PAIN [None]
  - BLOOD GLUCOSE INCREASED [None]
  - DECREASED APPETITE [None]
  - DIARRHOEA [None]
  - DRUG INEFFECTIVE [None]
  - FATIGUE [None]
  - MYALGIA [None]
  - NAUSEA [None]
